FAERS Safety Report 18532577 (Version 3)
Quarter: 2020Q4

REPORT INFORMATION
  Report Type: Spontaneous
  Country: JP (occurrence: JP)
  Receive Date: 20201123
  Receipt Date: 20201209
  Transmission Date: 20210114
  Serious: Yes (Hospitalization)
  Sender: FDA-Public Use
  Company Number: JP-JNJFOC-20200237647

PATIENT
  Age: 79 Year
  Sex: Male
  Weight: 56.4 kg

DRUGS (15)
  1. DIQUAFOSOL SODIUM [Concomitant]
     Active Substance: DIQUAFOSOL TETRASODIUM
     Dosage: DOSE UNKNOWN
     Route: 047
  2. BELSOMRA [Suspect]
     Active Substance: SUVOREXANT
     Dosage: DOSE UNKNOWN
     Route: 048
     Dates: end: 20200213
  3. PROMAC [Suspect]
     Active Substance: NITROFURANTOIN
     Dosage: DOSE UNKNOWN
     Route: 048
     Dates: end: 20200213
  4. GOSERELIN ACETATE [Concomitant]
     Active Substance: GOSERELIN ACETATE
     Dosage: DOSE UNKNOWN
     Route: 058
  5. PITAVASTATIN CALCIUM [Suspect]
     Active Substance: PITAVASTATIN CALCIUM
     Dosage: DOSE UNKNOWN
     Route: 048
     Dates: end: 20200213
  6. OLOPATADINE HYDROCHLORIDE. [Concomitant]
     Active Substance: OLOPATADINE HYDROCHLORIDE
     Dosage: DOSE UNKNOWN
     Route: 048
  7. BETANIS [Suspect]
     Active Substance: MIRABEGRON
     Dosage: DOSE UNKNOWN
     Route: 048
     Dates: end: 20200213
  8. EPINASTINE HYDROCHLORIDE. [Concomitant]
     Active Substance: EPINASTINE HYDROCHLORIDE
     Dosage: DOSE UNKNOWN
     Route: 047
  9. LATANOPROST. [Concomitant]
     Active Substance: LATANOPROST
     Dosage: DOSE UNKNOWN
     Route: 047
  10. ERLEADA [Suspect]
     Active Substance: APALUTAMIDE
     Indication: HORMONE-REFRACTORY PROSTATE CANCER
     Route: 048
     Dates: start: 20191227, end: 20200213
  11. FLIVAS [Suspect]
     Active Substance: NAFTOPIDIL
     Dosage: DOSE UNKNOWN
     Route: 048
     Dates: end: 20200213
  12. PREDONINE [Suspect]
     Active Substance: PREDNISOLONE
     Dosage: DOSE UNKNOWN
     Route: 065
     Dates: end: 20200213
  13. EDIROL [Suspect]
     Active Substance: ELDECALCITOL
     Dosage: DOSE UNKNOWN
     Route: 048
     Dates: end: 20200213
  14. JANUVIA [Suspect]
     Active Substance: SITAGLIPTIN PHOSPHATE
     Dosage: DOSE UNKNOWN
     Route: 048
     Dates: end: 20200213
  15. FERROUS SODIUM CITRATE [Concomitant]
     Active Substance: SODIUM FERROUS CITRATE
     Dosage: DOSE UNKNOWN
     Route: 048

REACTIONS (1)
  - Acute generalised exanthematous pustulosis [Recovering/Resolving]

NARRATIVE: CASE EVENT DATE: 20200212
